FAERS Safety Report 9147276 (Version 1)
Quarter: 2013Q1

REPORT INFORMATION
  Report Type: Spontaneous
  Country: JP (occurrence: JP)
  Receive Date: 20130307
  Receipt Date: 20130307
  Transmission Date: 20140127
  Serious: Yes (Other)
  Sender: FDA-Public Use
  Company Number: JP-BAYER-2013-028267

PATIENT
  Age: 37 Year
  Sex: Female

DRUGS (2)
  1. IOPROMIDE [Suspect]
     Indication: CHRONIC MYELOID LEUKAEMIA
     Dosage: 75 ML, UNK
     Route: 065
     Dates: start: 20130222, end: 20130222
  2. IOPROMIDE [Suspect]
     Indication: THROMBOCYTOSIS

REACTIONS (3)
  - Loss of consciousness [Recovered/Resolved]
  - Musculoskeletal stiffness [Recovered/Resolved]
  - Convulsion [Recovered/Resolved]
